FAERS Safety Report 19628770 (Version 1)
Quarter: 2021Q3

REPORT INFORMATION
  Report Type: Spontaneous
  Country: US (occurrence: US)
  Receive Date: 20210728
  Receipt Date: 20210728
  Transmission Date: 20211014
  Serious: Yes (Other)
  Sender: FDA-Public Use
  Company Number: US-PFIZER INC-2021612305

PATIENT
  Age: 59 Year
  Sex: Female

DRUGS (1)
  1. XELJANZ XR [Suspect]
     Active Substance: TOFACITINIB CITRATE
     Indication: RHEUMATOID ARTHRITIS
     Dosage: 11 MG, 1X/DAY
     Route: 048

REACTIONS (8)
  - Peripheral nerve injury [Unknown]
  - Blood pressure increased [Unknown]
  - Therapeutic product effect incomplete [Unknown]
  - Erythema [Unknown]
  - Blood glucose decreased [Unknown]
  - Migraine [Unknown]
  - Joint swelling [Unknown]
  - Lethargy [Unknown]
